FAERS Safety Report 19996136 (Version 1)
Quarter: 2021Q4

REPORT INFORMATION
  Report Type: Spontaneous
  Country: IN (occurrence: IN)
  Receive Date: 20211026
  Receipt Date: 20211026
  Transmission Date: 20220304
  Serious: Yes (Other)
  Sender: FDA-Public Use
  Company Number: IN-ROCHE-2930353

PATIENT
  Sex: Female

DRUGS (2)
  1. KADCYLA [Suspect]
     Active Substance: ADO-TRASTUZUMAB EMTANSINE
     Indication: Product used for unknown indication
     Route: 065
  2. PERJETA [Suspect]
     Active Substance: PERTUZUMAB
     Indication: Product used for unknown indication
     Route: 065

REACTIONS (11)
  - Drug ineffective [Unknown]
  - Metastatic neoplasm [Unknown]
  - Hepatomegaly [Unknown]
  - Pulmonary mass [Unknown]
  - Ill-defined disorder [Unknown]
  - Lymphadenopathy mediastinal [Unknown]
  - Vascular device user [Unknown]
  - Breast calcifications [Unknown]
  - Imaging procedure artifact [Unknown]
  - Breast calcifications [Unknown]
  - Pulmonary mass [Unknown]
